FAERS Safety Report 4265282-8 (Version None)
Quarter: 2004Q1

REPORT INFORMATION
  Report Type: 
  Country: None (occurrence: None)
  Receive Date: 20040107
  Receipt Date: 20040107
  Transmission Date: 20041129
  Serious: No
  Sender: FDA-Public Use
  Company Number: None

PATIENT
  Age: 3 Year

DRUGS (1)
  1. CHLORAL HYDRATE [Suspect]
     Indication: ATAXIA
     Dosage: SOLUTION

REACTIONS (2)
  - MEDICATION ERROR [None]
  - SCREAMING [None]
